FAERS Safety Report 7048367-2 (Version None)
Quarter: 2010Q4

REPORT INFORMATION
  Report Type: 
  Country: None (occurrence: None)
  Receive Date: 20101015
  Receipt Date: 20101005
  Transmission Date: 20110411
  Serious: Yes (Hospitalization)
  Sender: FDA-Public Use
  Company Number: GT-ABBOTT-10P-069-0675869-00

PATIENT
  Age: 26 Year
  Sex: Female

DRUGS (5)
  1. ALUVIA TABLETS 200MG/50MG [Suspect]
     Indication: HIV INFECTION
     Dosage: 200/50MG X 2 TABLETS
     Route: 048
     Dates: start: 20091030
  2. ALUVIA TABLETS 200MG/50MG [Suspect]
     Indication: PROPHYLAXIS
  3. ALUVIA TABLETS 200MG/50MG [Suspect]
     Indication: HUMAN IMMUNODEFICIENCY VIRUS TRANSMISSION
  4. LAMIVUDINE + ZIDOVUDINE [Concomitant]
     Indication: PRODUCT USED FOR UNKNOWN INDICATION
     Dosage: 300MG + 150 MG DAILY
     Dates: start: 20091030
  5. TRIMETHOPRIM + SULFAMETHOXAZOLE [Concomitant]
     Indication: ANTIFUNGAL PROPHYLAXIS
     Route: 048
     Dates: start: 20091030, end: 20100106

REACTIONS (1)
  - INTRA-UTERINE DEATH [None]
